FAERS Safety Report 4764274-X (Version None)
Quarter: 2005Q3

REPORT INFORMATION
  Report Type: 
  Country: None (occurrence: None)
  Receive Date: 20050907
  Receipt Date: 20050907
  Transmission Date: 20060218
  Serious: Yes (Death, Life-Threatening)
  Sender: FDA-Public Use
  Company Number: None

PATIENT
  Age: 84 Year
  Sex: Female
  Weight: 62.5964 kg

DRUGS (8)
  1. MEPERIDINE [Suspect]
     Indication: ENDOSCOPY
     Dosage: 25 MG IV X 1
     Route: 042
     Dates: start: 20050726
  2. MIDAZOLAM [Suspect]
     Indication: ENDOSCOPY
     Dosage: 4 MG IV X 1
     Route: 042
     Dates: start: 20050726
  3. LASIX [Concomitant]
  4. LOPRESSOR [Concomitant]
  5. AMLODIPINE [Concomitant]
  6. LANTUS [Concomitant]
  7. PREVACID [Concomitant]
  8. FRAGMIN [Concomitant]

REACTIONS (6)
  - CARDIOPULMONARY FAILURE [None]
  - DUODENAL ULCER [None]
  - GASTRIC ULCER PERFORATION [None]
  - HYPOXIA [None]
  - PROCEDURAL COMPLICATION [None]
  - UPPER GASTROINTESTINAL HAEMORRHAGE [None]
